FAERS Safety Report 5448505-9 (Version None)
Quarter: 2007Q3

REPORT INFORMATION
  Report Type: 
  Country: None (occurrence: None)
  Receive Date: 20070905
  Receipt Date: 20070823
  Transmission Date: 20080115
  Serious: Yes (Life-Threatening, Other)
  Sender: FDA-Public Use
  Company Number: SPV1-2007-03798

PATIENT
  Age: 7 Year
  Sex: Female
  Weight: 24.9 kg

DRUGS (1)
  1. VYVANSE [Suspect]
     Indication: ATTENTION DEFICIT/HYPERACTIVITY DISORDER
     Dosage: 30 MG, 1X/DAY:QD, ORAL
     Route: 048
     Dates: start: 20070723, end: 20070724

REACTIONS (7)
  - HALLUCINATIONS, MIXED [None]
  - INSOMNIA [None]
  - LOGORRHOEA [None]
  - PRURITUS GENERALISED [None]
  - PSYCHOMOTOR HYPERACTIVITY [None]
  - RASH [None]
  - THINKING ABNORMAL [None]
